FAERS Safety Report 4640828-6 (Version None)
Quarter: 2005Q2

REPORT INFORMATION
  Report Type: 
  Country: None (occurrence: None)
  Receive Date: 20050324
  Receipt Date: 20050120
  Transmission Date: 20051028
  Serious: No
  Sender: FDA-Public Use
  Company Number: 211883

PATIENT
  Age: 54 Year
  Sex: Male
  Weight: 51.7 kg

DRUGS (6)
  1. AVASTIN [Suspect]
     Indication: COLORECTAL CANCER
     Dosage: 390 MG, Q3W, INTRAVENOUS
     Route: 042
     Dates: start: 20041202
  2. FLUOROURACIL [Concomitant]
  3. LEUCOVORIN CALCIUM [Concomitant]
  4. IRINOTECAN HCL [Concomitant]
  5. DOLASETRON (DOLASETRON MESYLATE) [Concomitant]
  6. DECADRON SRC [Concomitant]

REACTIONS (1)
  - RASH [None]
